FAERS Safety Report 8914114 (Version 2)
Quarter: 2012Q4

REPORT INFORMATION
  Report Type: 
  Country: GR (occurrence: GR)
  Receive Date: 20121119
  Receipt Date: 20121120
  Transmission Date: 20130627
  Serious: Yes (Hospitalization)
  Sender: FDA-Public Use
  Company Number: GR-AMGEN-GRCSP2010000830

PATIENT
  Age: 66 Year
  Sex: Male
  Weight: 70 kg

DRUGS (2)
  1. VECTIBIX [Suspect]
     Indication: COLORECTAL CANCER METASTATIC
     Dosage: 6 mg/kg, q3wk
     Dates: start: 201010
  2. XELODA [Concomitant]
     Indication: COLORECTAL CANCER METASTATIC
     Dosage: UNK

REACTIONS (4)
  - Staphylococcal skin infection [Recovered/Resolved]
  - Rash generalised [Recovered/Resolved]
  - Rash pustular [Recovered/Resolved]
  - Skin fissures [Recovered/Resolved]
